FAERS Safety Report 17412090 (Version 1)
Quarter: 2020Q1

REPORT INFORMATION
  Report Type: Spontaneous
  Country: US (occurrence: FR)
  Receive Date: 20200213
  Receipt Date: 20200213
  Transmission Date: 20200409
  Serious: Yes (Hospitalization, Other)
  Sender: FDA-Public Use
  Company Number: FR-ZYDUS-047299

PATIENT
  Age: 52 Year
  Sex: Female

DRUGS (3)
  1. METHYLPHENIDATE. [Interacting]
     Active Substance: METHYLPHENIDATE
     Indication: DEEP VEIN THROMBOSIS
  2. PITOLISANT [Interacting]
     Active Substance: PITOLISANT
     Indication: DEEP VEIN THROMBOSIS
  3. VENLAFAXINE/VENLAFAXINE HYDROCHLORIDE [Suspect]
     Active Substance: VENLAFAXINE HYDROCHLORIDE
     Indication: DEEP VEIN THROMBOSIS
     Route: 065

REACTIONS (2)
  - Drug interaction [Unknown]
  - Vasospasm [Unknown]
